APPROVED DRUG PRODUCT: SPIRIVA RESPIMAT
Active Ingredient: TIOTROPIUM BROMIDE
Strength: EQ 0.00125MG BASE/INH
Dosage Form/Route: SPRAY, METERED;INHALATION
Application: N021936 | Product #002
Applicant: BOEHRINGER INGELHEIM PHARMACEUTICALS INC
Approved: Sep 15, 2015 | RLD: Yes | RS: Yes | Type: RX